FAERS Safety Report 9176802 (Version 2)
Quarter: 2013Q2

REPORT INFORMATION
  Report Type: Report from Study
  Country: CA (occurrence: CA)
  Receive Date: 20130321
  Receipt Date: 20130513
  Transmission Date: 20140414
  Serious: Yes (Death, Hospitalization, Other)
  Sender: FDA-Public Use
  Company Number: PHHY2012CA103893

PATIENT
  Age: 74 Year
  Sex: Male

DRUGS (1)
  1. ZOMETA [Suspect]
     Indication: RENAL CELL CARCINOMA
     Dosage: 4 MG, EVERY 8 WEEKS
     Route: 042
     Dates: start: 20120913

REACTIONS (3)
  - Death [Fatal]
  - Pulmonary thrombosis [Unknown]
  - Malignant neoplasm progression [Unknown]
